FAERS Safety Report 14577592 (Version 1)
Quarter: 2018Q1

REPORT INFORMATION
  Report Type: Spontaneous
  Country: US (occurrence: US)
  Receive Date: 20180227
  Receipt Date: 20180227
  Transmission Date: 20180509
  Serious: Yes (Hospitalization, Other)
  Sender: FDA-Public Use
  Company Number: US-B.I. PHARMACEUTICALS,INC./RIDGEFIELD-2018-BI-009686

PATIENT
  Age: 61 Year
  Sex: Female

DRUGS (1)
  1. SPIRIVA [Suspect]
     Active Substance: TIOTROPIUM BROMIDE MONOHYDRATE
     Indication: CHRONIC OBSTRUCTIVE PULMONARY DISEASE
     Dosage: ONE CAPSULES DAILY;  FORM STRENGTH: 18 MCG; FORMULATION: CAPSULE? ADMINISTRATION CORRECT? YES ?ACTIO
     Route: 055
     Dates: start: 2004, end: 2015

REACTIONS (6)
  - Nephrolithiasis [Not Recovered/Not Resolved]
  - Ureteric obstruction [Unknown]
  - Sepsis [Unknown]
  - Blood count abnormal [Unknown]
  - Nephrolithiasis [Unknown]
  - Arthritis [Unknown]

NARRATIVE: CASE EVENT DATE: 201207
